FAERS Safety Report 18174847 (Version 2)
Quarter: 2020Q3

REPORT INFORMATION
  Report Type: Spontaneous
  Country: GB (occurrence: GB)
  Receive Date: 20200820
  Receipt Date: 20200908
  Transmission Date: 20201103
  Serious: Yes (Death)
  Sender: FDA-Public Use
  Company Number: GB-MYLANLABS-2020M1072248

PATIENT
  Age: 63 Year
  Sex: Female
  Weight: 83 kg

DRUGS (4)
  1. CALCICHEW D3 [Concomitant]
     Active Substance: CALCIUM\CHOLECALCIFEROL
     Dosage: 1 DOSAGE FORM, BID
     Route: 048
  2. CLOZARIL [Suspect]
     Active Substance: CLOZAPINE
     Indication: SCHIZOPHRENIA
     Dosage: 100 MILLIGRAM, AM
     Route: 048
     Dates: start: 20010701, end: 20200730
  3. CLOZARIL [Suspect]
     Active Substance: CLOZAPINE
     Dosage: 200 MILLIGRAM, PM
     Route: 048
     Dates: start: 20010701, end: 20200730
  4. LETROZOLE. [Concomitant]
     Active Substance: LETROZOLE
     Dosage: 2.5 MILLIGRAM, AM
     Route: 048

REACTIONS (1)
  - Neoplasm malignant [Fatal]
